FAERS Safety Report 15747980 (Version 1)
Quarter: 2018Q4

REPORT INFORMATION
  Report Type: Spontaneous
  Country: GB (occurrence: GB)
  Receive Date: 20181221
  Receipt Date: 20181221
  Transmission Date: 20190205
  Serious: Yes (Other)
  Sender: FDA-Public Use
  Company Number: GB-TEVA-2018-GB-989603

PATIENT
  Age: 74 Year
  Sex: Female
  Weight: 93 kg

DRUGS (13)
  1. LACTULOSE. [Concomitant]
     Active Substance: LACTULOSE
     Dosage: 10-15ML TWICE DAILY
     Route: 065
     Dates: start: 20171013
  2. CROTAMITON [Concomitant]
     Active Substance: CROTAMITON
     Dosage: APPLY TO THE AFFECTED AREA(S) 2-3 TIMES DAILY
     Route: 065
     Dates: start: 20181123
  3. ISPAGHULA EXTRACT\PSYLLIUM [Concomitant]
     Active Substance: HERBALS\PLANTAGO OVATA SEED\PLANTAGO SEED
     Dosage: 1 DOSAGE FORMS DAILY;
     Route: 065
     Dates: start: 20180724
  4. CLONAZEPAM. [Concomitant]
     Active Substance: CLONAZEPAM
     Indication: PAIN
     Route: 065
     Dates: start: 20171013
  5. CETIRIZINE [Concomitant]
     Active Substance: CETIRIZINE HYDROCHLORIDE
     Dosage: 1 DOSAGE FORMS DAILY;
     Route: 065
     Dates: start: 20181123
  6. CIPROFLOXACIN. [Suspect]
     Active Substance: CIPROFLOXACIN
     Route: 065
     Dates: start: 20181123
  7. LIDOCAINE. [Concomitant]
     Active Substance: LIDOCAINE
     Dosage: PATCHES
     Route: 065
     Dates: start: 20171013
  8. TRIMETHOPRIM. [Concomitant]
     Active Substance: TRIMETHOPRIM
     Dosage: 2 DOSAGE FORMS DAILY;
     Route: 065
     Dates: start: 20181123
  9. CANDESARTAN. [Concomitant]
     Active Substance: CANDESARTAN
     Dosage: 1 DOSAGE FORMS DAILY;
     Route: 065
     Dates: start: 20171013
  10. NITROFURANTOIN. [Concomitant]
     Active Substance: NITROFURANTOIN
     Dosage: 2 DOSAGE FORMS DAILY;
     Route: 065
     Dates: start: 20181120
  11. PARACETAMOL [Concomitant]
     Active Substance: ACETAMINOPHEN
     Dosage: TAKE 1 OR 2 4 TIMES/DAY FOR CONSTI...
     Route: 065
     Dates: start: 20171013
  12. ACETYLSALICYLIC ACID [Concomitant]
     Active Substance: ASPIRIN
     Dosage: 1 DOSAGE FORMS DAILY;
     Route: 065
     Dates: start: 20171013
  13. PRAVASTATIN. [Concomitant]
     Active Substance: PRAVASTATIN
     Dosage: 1 DOSAGE FORMS DAILY;
     Route: 065
     Dates: start: 20171013

REACTIONS (1)
  - Rash pruritic [Recovering/Resolving]

NARRATIVE: CASE EVENT DATE: 20181123
